FAERS Safety Report 4501670-X (Version None)
Quarter: 2004Q4

REPORT INFORMATION
  Report Type: 
  Country: None (occurrence: None)
  Receive Date: 20041116
  Receipt Date: 20041104
  Transmission Date: 20050328
  Serious: Yes (Life-Threatening, Hospitalization, Disabling)
  Sender: FDA-Public Use
  Company Number: AT-JNJFOC-20041101668

PATIENT
  Sex: Male
  Weight: 73 kg

DRUGS (6)
  1. REMICADE [Suspect]
     Route: 042
  2. REMICADE [Suspect]
     Route: 042
  3. REMICADE [Suspect]
     Route: 042
  4. ZOLPIDEM TARTRATE [Concomitant]
     Route: 049
  5. METHOTREXATE [Concomitant]
     Dosage: 4 X 2.5 MG ONCE A WEEK
     Route: 049
  6. FOLIC ACID [Concomitant]
     Dosage: ONCE DAILY EXCEPT MTX DAY.
     Route: 049

REACTIONS (4)
  - ABDOMINAL PAIN LOWER [None]
  - COLON CANCER [None]
  - COLONIC STENOSIS [None]
  - DIVERTICULUM INTESTINAL [None]
